FAERS Safety Report 4786743-9 (Version None)
Quarter: 2005Q3

REPORT INFORMATION
  Report Type: 
  Country: None (occurrence: None)
  Receive Date: 20050930
  Receipt Date: 20050919
  Transmission Date: 20060218
  Serious: Yes (Disabling, Other)
  Sender: FDA-Public Use
  Company Number: 2005131116

PATIENT
  Sex: Female
  Weight: 77.1115 kg

DRUGS (6)
  1. CELEBREX [Suspect]
     Indication: ARTHRITIS
     Dosage: 400 MG (200 MG, 2 IN 1 )
  2. DETROL LA [Suspect]
     Indication: BLADDER DISORDER
     Dosage: 4 MG (4 MG, 2 IN 1 )
  3. LEVATOL (PENBUTOLOL SULFATE) [Concomitant]
  4. BACLOFEN [Concomitant]
  5. ESTRADIOL [Concomitant]
  6. CLONAZEPAM [Concomitant]

REACTIONS (4)
  - ABASIA [None]
  - ECONOMIC PROBLEM [None]
  - HYPOAESTHESIA [None]
  - SCIATICA [None]
